FAERS Safety Report 23654500 (Version 1)
Quarter: 2024Q1

REPORT INFORMATION
  Report Type: Spontaneous
  Country: US (occurrence: US)
  Receive Date: 20240320
  Receipt Date: 20240320
  Transmission Date: 20240410
  Serious: No
  Sender: FDA-Public Use
  Company Number: US-CTI BIOPHARMA-2024US04539

PATIENT
  Sex: Male

DRUGS (4)
  1. VONJO [Suspect]
     Active Substance: PACRITINIB
     Indication: Myelofibrosis
     Dosage: 100 MG, QD
     Route: 048
     Dates: start: 20240219
  2. HYDROXYUREA [Concomitant]
     Active Substance: HYDROXYUREA
  3. NAPROXEN [Concomitant]
     Active Substance: NAPROXEN
  4. OXYBUTYNIN [Concomitant]
     Active Substance: OXYBUTYNIN\OXYBUTYNIN CHLORIDE

REACTIONS (2)
  - Pollakiuria [Unknown]
  - Abdominal pain upper [Unknown]
